FAERS Safety Report 24137675 (Version 1)
Quarter: 2024Q3

REPORT INFORMATION
  Report Type: Spontaneous
  Country: US (occurrence: US)
  Receive Date: 20240725
  Receipt Date: 20240725
  Transmission Date: 20241016
  Serious: Yes (Other)
  Sender: RECORDATI
  Company Number: US-ORPHANEU-2024005541

PATIENT

DRUGS (5)
  1. SILTUXIMAB [Suspect]
     Active Substance: SILTUXIMAB
     Indication: Cytokine release syndrome
     Dosage: ONE DOSE 11 MG/KG ON DAY 35
  2. SILTUXIMAB [Suspect]
     Active Substance: SILTUXIMAB
     Indication: Off label use
  3. METHYLPREDNISOLONE [Suspect]
     Active Substance: METHYLPREDNISOLONE
     Indication: Cytokine release syndrome
     Dosage: 1 G/DAY FROM DAY 31 TO 35
  4. METHYLPREDNISOLONE [Suspect]
     Active Substance: METHYLPREDNISOLONE
     Dosage: 1 MG/KG/DAY FROM DAY 36 TO 39
  5. ANAKINRA [Suspect]
     Active Substance: ANAKINRA
     Indication: Cytokine release syndrome
     Dosage: 100 MG/DAY ON DAY 31 TO 39

REACTIONS (4)
  - Respiratory failure [Unknown]
  - Cytomegalovirus infection [Unknown]
  - Condition aggravated [Unknown]
  - Off label use [Recovered/Resolved]
